FAERS Safety Report 11090840 (Version 1)
Quarter: 2015Q2

REPORT INFORMATION
  Report Type: Spontaneous
  Country: US (occurrence: US)
  Receive Date: 20150505
  Receipt Date: 20150505
  Transmission Date: 20150821
  Serious: Yes (Other)
  Sender: FDA-Public Use
  Company Number: US-JNJFOC-20150422380

PATIENT
  Sex: Female

DRUGS (3)
  1. ULTRAM [Suspect]
     Active Substance: TRAMADOL HYDROCHLORIDE
     Indication: FIBROMYALGIA
     Route: 065
  2. TYLENOL [Suspect]
     Active Substance: ACETAMINOPHEN
     Indication: KNEE ARTHROPLASTY
     Dosage: TWICE A DAY (NIGHT AND MORNING)
     Route: 065
     Dates: start: 2010
  3. LYRICA [Suspect]
     Active Substance: PREGABALIN
     Indication: KNEE ARTHROPLASTY
     Route: 065
     Dates: start: 2010

REACTIONS (6)
  - Vomiting [Recovered/Resolved]
  - Pain [Not Recovered/Not Resolved]
  - Abdominal distension [Recovered/Resolved]
  - Dehydration [Recovered/Resolved]
  - Dysentery [Unknown]
  - Intestinal obstruction [Recovered/Resolved]
